FAERS Safety Report 5562634-0 (Version None)
Quarter: 2007Q4

REPORT INFORMATION
  Report Type: 
  Country: None (occurrence: None)
  Receive Date: 20071217
  Receipt Date: 20070108
  Transmission Date: 20080405
  Serious: Yes (Other)
  Sender: FDA-Public Use
  Company Number: US-KINGPHARMUSA00001-K200700015

PATIENT

DRUGS (1)
  1. PITOCIN [Suspect]
     Indication: LABOUR INDUCTION
     Dosage: UNK, SINGLE
     Route: 042
     Dates: start: 20070106, end: 20070106

REACTIONS (2)
  - DRUG INEFFECTIVE [None]
  - POSTPARTUM HAEMORRHAGE [None]
